FAERS Safety Report 22334261 (Version 1)
Quarter: 2023Q2

REPORT INFORMATION
  Report Type: Spontaneous
  Country: US (occurrence: US)
  Receive Date: 20230517
  Receipt Date: 20230517
  Transmission Date: 20230722
  Serious: No
  Sender: FDA-Public Use
  Company Number: US-NOVOPROD-1010393

PATIENT
  Sex: Female

DRUGS (3)
  1. NORDITROPIN [Suspect]
     Active Substance: SOMATROPIN
     Dosage: 0.3 MG
     Route: 058
  2. NORDITROPIN [Suspect]
     Active Substance: SOMATROPIN
     Indication: Product used for unknown indication
     Dosage: 0.2 MG
     Route: 058
  3. NORDITROPIN [Suspect]
     Active Substance: SOMATROPIN
     Dosage: 0.4 MG
     Route: 058

REACTIONS (1)
  - Feeling abnormal [Unknown]
